FAERS Safety Report 9524318 (Version 2)
Quarter: 2013Q3

REPORT INFORMATION
  Report Type: Spontaneous
  Country: JP (occurrence: JP)
  Receive Date: 20130916
  Receipt Date: 20130916
  Transmission Date: 20140515
  Serious: Yes (Other)
  Sender: FDA-Public Use
  Company Number: JP-TAKEDA-TCI2013A02206

PATIENT
  Age: 65 Year
  Sex: Female

DRUGS (2)
  1. NESINA TABLETS 25MG [Suspect]
     Indication: DIABETES MELLITUS
     Dosage: 25 MG, QD
     Route: 048
     Dates: start: 20130301, end: 20130305
  2. LANTUS [Concomitant]
     Route: 042
     Dates: start: 201302

REACTIONS (4)
  - Renal disorder [Unknown]
  - Disseminated intravascular coagulation [Unknown]
  - Stevens-Johnson syndrome [Recovering/Resolving]
  - Rash [Recovering/Resolving]
